FAERS Safety Report 4390945-3 (Version None)
Quarter: 2004Q3

REPORT INFORMATION
  Report Type: 
  Country: None (occurrence: None)
  Receive Date: 20040702
  Receipt Date: 20040702
  Transmission Date: 20050211
  Serious: Yes (Other)
  Sender: FDA-Public Use
  Company Number: None

PATIENT
  Age: 35 Year
  Sex: Female
  Weight: 58.9676 kg

DRUGS (9)
  1. KEFLEX [Suspect]
     Indication: PROPHYLAXIS
     Dates: start: 20040603, end: 20040610
  2. LEVOXYL [Concomitant]
  3. AUGMENTIN '125' [Concomitant]
  4. CIPRO [Concomitant]
  5. MULTIVITAMIN [Concomitant]
  6. CA [Concomitant]
  7. MG [Concomitant]
  8. CHROMIUM [Concomitant]
  9. K [Concomitant]

REACTIONS (4)
  - BREAST ABSCESS [None]
  - IMPLANT SITE INFECTION [None]
  - POSTOPERATIVE INFECTION [None]
  - UNINTENDED PREGNANCY [None]
